FAERS Safety Report 4877178-9 (Version None)
Quarter: 2005Q4

REPORT INFORMATION
  Report Type: 
  Country: None (occurrence: None)
  Receive Date: 20051206
  Receipt Date: 20050928
  Transmission Date: 20060501
  Serious: No
  Sender: FDA-Public Use
  Company Number: USA0509109498

PATIENT
  Age: 73 Year
  Sex: Female
  Weight: 73 kg

DRUGS (5)
  1. CYMBALTA [Suspect]
     Indication: DEPRESSION
     Dosage: 60 MG DAY
     Dates: start: 20050701
  2. VERAPAMIL [Concomitant]
  3. ISOBIDE (ISOSORBIDE) [Concomitant]
  4. LASIX [Concomitant]
  5. GLYBURIDE [Concomitant]

REACTIONS (4)
  - DRUG INEFFECTIVE [None]
  - FEELING ABNORMAL [None]
  - LIMB DISCOMFORT [None]
  - MUSCLE TWITCHING [None]
